FAERS Safety Report 4553832-3 (Version None)
Quarter: 2005Q1

REPORT INFORMATION
  Report Type: 
  Country: None (occurrence: None)
  Receive Date: 20050110
  Receipt Date: 20050110
  Transmission Date: 20050727
  Serious: Yes (Other)
  Sender: FDA-Public Use
  Company Number: None

PATIENT
  Age: 27 Year
  Sex: Female
  Weight: 56.246 kg

DRUGS (3)
  1. ORTHO EVRA [Suspect]
     Indication: CONTRACEPTION
     Dosage: PATCH-SKIN
  2. LITHOBID [Concomitant]
  3. SEROQUEL [Concomitant]

REACTIONS (2)
  - HYPERHIDROSIS [None]
  - UNINTENDED PREGNANCY [None]
